FAERS Safety Report 6568330-5 (Version None)
Quarter: 2010Q1

REPORT INFORMATION
  Report Type: 
  Country: None (occurrence: None)
  Receive Date: 20100203
  Receipt Date: 20100125
  Transmission Date: 20100710
  Serious: No
  Sender: FDA-Public Use
  Company Number: US-B.I. PHARMACEUTICALS,INC./RIDGEFIELD-2009-BP-12959BP

PATIENT
  Sex: Female

DRUGS (6)
  1. SPIRIVA [Suspect]
     Indication: WHEEZING
     Dosage: 18 MCG
     Route: 055
     Dates: start: 20091001
  2. SPIRIVA [Suspect]
     Indication: DYSPNOEA
  3. PREDNISONE [Concomitant]
     Indication: VASCULITIS
  4. CARDIZEM [Concomitant]
     Indication: HYPERTENSION
  5. LOPRESSOR [Concomitant]
  6. OXYCODONE [Concomitant]

REACTIONS (3)
  - DYSPHONIA [None]
  - OROPHARYNGEAL PAIN [None]
  - THROAT IRRITATION [None]
